FAERS Safety Report 6599544-6 (Version None)
Quarter: 2010Q1

REPORT INFORMATION
  Report Type: 
  Country: None (occurrence: None)
  Receive Date: 20100224
  Receipt Date: 20100216
  Transmission Date: 20100710
  Serious: Yes (Other)
  Sender: FDA-Public Use
  Company Number: US-ROCHE-637483

PATIENT
  Sex: Female
  Weight: 83.9 kg

DRUGS (19)
  1. PEGASYS [Suspect]
     Indication: HEPATITIS C
     Dosage: FORM: PFS
     Route: 058
     Dates: start: 20090425, end: 20090917
  2. COPEGUS [Suspect]
     Indication: HEPATITIS C
     Dosage: DIVIDED DOSES
     Route: 048
     Dates: start: 20090425, end: 20090917
  3. METFORMIN HCL [Concomitant]
     Indication: DIABETES MELLITUS
     Dosage: FREQUENCY: EVERY EVENING
  4. INSULIN [Concomitant]
     Dosage: FREQUENCY: EVERY MORNING, DOSE: 35CC
  5. COUMADIN [Concomitant]
     Indication: ATRIAL FIBRILLATION
     Route: 048
  6. XANAX [Concomitant]
     Dosage: OTHER INDICATION: ANXIETY; AS NEEDED
     Route: 048
  7. POTASSIUM CHLORIDE [Concomitant]
     Route: 048
  8. ATENOLOL [Concomitant]
     Indication: HYPERTENSION
     Dosage: AT BEDTIME
     Route: 048
  9. DIGOXIN [Concomitant]
     Indication: ATRIAL FIBRILLATION
     Route: 048
  10. CARDIZEM [Concomitant]
     Indication: HYPERTENSION
     Route: 048
  11. NORTRIPTYLINE HCL [Concomitant]
     Dosage: OTHER INDICATION: SLEEP; AT BEDTIME
     Route: 048
  12. LASIX [Concomitant]
     Dosage: OTHER INDICATION: LIVER FUNCTION
     Route: 048
  13. LEVEMIR [Concomitant]
     Indication: DIABETES MELLITUS
  14. ATACAND [Concomitant]
     Indication: HYPERTENSION
     Route: 048
  15. ZOCOR [Concomitant]
     Route: 048
  16. VITAMIN D [Concomitant]
     Dosage: DRUG NAME: VITAMIN D
  17. LEVAQUIN [Concomitant]
  18. AUGMENTIN [Concomitant]
  19. CELEXA [Concomitant]
     Indication: DEPRESSION

REACTIONS (10)
  - DYSPNOEA [None]
  - HAEMOPTYSIS [None]
  - HEPATITIS C [None]
  - INJECTION SITE ERYTHEMA [None]
  - INJECTION SITE INFLAMMATION [None]
  - INJECTION SITE WARMTH [None]
  - LUNG DISORDER [None]
  - MALAISE [None]
  - PULMONARY CONGESTION [None]
  - SPUTUM ABNORMAL [None]
